FAERS Safety Report 18308059 (Version 1)
Quarter: 2020Q3

REPORT INFORMATION
  Report Type: Report from Study
  Country: ES (occurrence: ES)
  Receive Date: 20200924
  Receipt Date: 20200924
  Transmission Date: 20201103
  Serious: Yes (Death)
  Sender: FDA-Public Use
  Company Number: ES-SAMSUNG BIOEPIS-SB-2020-27013

PATIENT
  Age: 74 Year
  Sex: Male

DRUGS (1)
  1. BENEPALI [Suspect]
     Active Substance: ETANERCEPT
     Indication: SPONDYLOARTHROPATHY
     Route: 058
     Dates: start: 20181113, end: 20200512

REACTIONS (2)
  - Product use in unapproved indication [Unknown]
  - Septic shock [Fatal]

NARRATIVE: CASE EVENT DATE: 20200512
